FAERS Safety Report 20034904 (Version 1)
Quarter: 2021Q4

REPORT INFORMATION
  Report Type: Spontaneous
  Country: GR (occurrence: GR)
  Receive Date: 20211104
  Receipt Date: 20211104
  Transmission Date: 20220303
  Serious: Yes (Life-Threatening, Hospitalization, Other)
  Sender: FDA-Public Use
  Company Number: GR-AZURITY PHARMACEUTICALS, INC.-2021AZY00103

PATIENT
  Age: 72 Year
  Sex: Female

DRUGS (1)
  1. AMLODIPINE [Suspect]
     Active Substance: AMLODIPINE BESYLATE
     Indication: Suicide attempt
     Dosage: 200 MG, ONCE
     Route: 048

REACTIONS (5)
  - Suicide attempt [Recovered/Resolved]
  - Acute pulmonary oedema [Recovered/Resolved]
  - Shock [Recovered/Resolved]
  - Mental disorder [Recovered/Resolved]
  - Overdose [Recovered/Resolved]
